FAERS Safety Report 8355967-6 (Version None)
Quarter: 2012Q2

REPORT INFORMATION
  Report Type: 
  Country: None (occurrence: None)
  Receive Date: 20120511
  Receipt Date: 20120511
  Transmission Date: 20120825
  Serious: Yes (Life-Threatening)
  Sender: FDA-Public Use
  Company Number: None

PATIENT
  Sex: Female
  Weight: 58.9676 kg

DRUGS (1)
  1. BUSPIRONE HCL [Suspect]
     Indication: ANXIETY
     Dosage: HALF TABLET TWICE DAILY
     Dates: start: 20120110, end: 20120507

REACTIONS (5)
  - CHEST DISCOMFORT [None]
  - ANXIETY [None]
  - SHOCK [None]
  - CHEST PAIN [None]
  - HEART RATE IRREGULAR [None]
